FAERS Safety Report 9783256 (Version 1)
Quarter: 2013Q4

REPORT INFORMATION
  Report Type: Report from Study
  Country: DE (occurrence: DE)
  Receive Date: 20131226
  Receipt Date: 20131226
  Transmission Date: 20140711
  Serious: Yes (Hospitalization, Other)
  Sender: FDA-Public Use
  Company Number: PHHO2013DE016514

PATIENT
  Age: 61 Year
  Sex: Male
  Weight: 74 kg

DRUGS (12)
  1. DOXAZOSIN [Suspect]
     Indication: HYPERTENSION
     Dosage: 0.5 MG, UNK
     Route: 048
  2. TELMISARTAN [Suspect]
     Indication: HYPERTENSION
     Dosage: 80 ^MH^
     Route: 048
  3. METOPROLOL [Suspect]
     Dosage: 95 MG, UNK
     Route: 048
  4. CLOPIDOGREL [Suspect]
     Indication: HEART TRANSPLANT
     Dosage: CODE NOT BROKEN
     Route: 048
     Dates: start: 20121107
  5. BLINDED NO TREATMENT RECEIVED [Suspect]
     Indication: HEART TRANSPLANT
     Dosage: CODE NOT BROKEN
     Route: 048
     Dates: start: 20121107
  6. BLINDED PLACEBO [Suspect]
     Indication: HEART TRANSPLANT
     Dosage: CODE NOT BROKEN
     Route: 048
     Dates: start: 20121107
  7. CICLOSPORIN A [Concomitant]
     Indication: PROPHYLAXIS AGAINST TRANSPLANT REJECTION
     Dosage: 75 MG, (75-0-75 MG) [DUE TO LOOD LEVEL]
     Route: 048
  8. EVEROLIMUS [Concomitant]
     Indication: PROPHYLAXIS AGAINST TRANSPLANT REJECTION
     Dosage: 0.5 MG, (0.5-0-0.5)
     Route: 048
  9. PREDNISOLONE [Concomitant]
     Indication: PROPHYLAXIS AGAINST TRANSPLANT REJECTION
     Dosage: 2.5 MG, UNK
     Route: 048
  10. ALLOPURINOL [Concomitant]
     Indication: HYPERURICAEMIA
     Dosage: 100 MG, UNK
     Route: 048
  11. NITRENDIPINE [Concomitant]
     Indication: HYPERTENSION
     Dosage: 5 MG, UNK
     Route: 048
  12. FLUVASTATIN [Concomitant]
     Indication: HYPERCHOLESTEROLAEMIA
     Dosage: 20 MG (0-0-20 MG), UNK
     Route: 048

REACTIONS (2)
  - Vertigo [Recovered/Resolved]
  - Nausea [Recovered/Resolved]
